FAERS Safety Report 7620544-9 (Version None)
Quarter: 2011Q3

REPORT INFORMATION
  Report Type: 
  Country: None (occurrence: None)
  Receive Date: 20110719
  Receipt Date: 20110714
  Transmission Date: 20111222
  Serious: Yes (Hospitalization, Other)
  Sender: FDA-Public Use
  Company Number: US-PFIZER INC-2011160711

PATIENT
  Age: 44 Year
  Sex: Female
  Weight: 136 kg

DRUGS (8)
  1. NAPROXEN (ALEVE) [Suspect]
  2. REBIF [Suspect]
     Indication: MULTIPLE SCLEROSIS
     Dosage: 44 UG, 3X WEEKLY
     Route: 058
     Dates: start: 20080312
  3. TIZANIDINE [Concomitant]
     Indication: MUSCLE SPASMS
     Dosage: UNK
  4. SOLU-MEDROL [Concomitant]
     Indication: MULTIPLE SCLEROSIS RELAPSE
     Dosage: 1 G, 1X/DAY FOR 5 DAYS
     Route: 042
     Dates: start: 20080601
  5. MEDROL [Concomitant]
     Indication: MULTIPLE SCLEROSIS RELAPSE
     Dosage: 1 DF, 1X/DAY
     Route: 048
     Dates: start: 20080801, end: 20080801
  6. IBUPROFEN (ADVIL) [Suspect]
     Indication: CEREBROVASCULAR ACCIDENT PROPHYLAXIS
     Dosage: UNK
  7. ASPIRIN [Suspect]
     Indication: CEREBROVASCULAR ACCIDENT PROPHYLAXIS
     Dosage: UNK
     Dates: start: 20081203
  8. PREDNISONE [Concomitant]
     Indication: MULTIPLE SCLEROSIS RELAPSE
     Dosage: TAPER
     Dates: start: 20080901, end: 20081015

REACTIONS (8)
  - DIARRHOEA [None]
  - HEART RATE INCREASED [None]
  - BLOOD PRESSURE DIASTOLIC INCREASED [None]
  - GASTRIC ULCER [None]
  - HEPATIC ENZYME INCREASED [None]
  - GASTRITIS [None]
  - ANXIETY [None]
  - BENIGN OESOPHAGEAL NEOPLASM [None]
